FAERS Safety Report 5169105-4 (Version None)
Quarter: 2006Q4

REPORT INFORMATION
  Report Type: 
  Country: None (occurrence: None)
  Receive Date: 20061211
  Receipt Date: 20061130
  Transmission Date: 20070319
  Serious: Yes (Other)
  Sender: FDA-Public Use
  Company Number: JP-ROCHE-473725

PATIENT
  Age: 57 Year
  Sex: Male

DRUGS (1)
  1. ROCEPHIN [Suspect]
     Indication: TONSILLITIS
     Route: 042
     Dates: start: 20061125, end: 20061127

REACTIONS (4)
  - ALANINE AMINOTRANSFERASE INCREASED [None]
  - ASPARTATE AMINOTRANSFERASE INCREASED [None]
  - LEUCINE AMINOPEPTIDASE INCREASED [None]
  - LIVER DISORDER [None]
